FAERS Safety Report 13876495 (Version 1)
Quarter: 2017Q3

REPORT INFORMATION
  Report Type: Spontaneous
  Country: US (occurrence: None)
  Receive Date: 20170814
  Receipt Date: 20170814
  Transmission Date: 20171127
  Serious: No
  Sender: FDA-Public Use
  Company Number: None

PATIENT
  Age: 57 Year
  Sex: Female

DRUGS (1)
  1. COPAXONE [Suspect]
     Active Substance: GLATIRAMER ACETATE
     Indication: MULTIPLE SCLEROSIS
     Route: 058
     Dates: start: 20160913

REACTIONS (5)
  - Injection site swelling [None]
  - Coronary artery disease [None]
  - Dizziness [None]
  - Dyspnoea [None]
  - Visual impairment [None]

NARRATIVE: CASE EVENT DATE: 20170701
